FAERS Safety Report 5040191-5 (Version None)
Quarter: 2006Q2

REPORT INFORMATION
  Report Type: 
  Country: None (occurrence: None)
  Receive Date: 20060630
  Receipt Date: 20060405
  Transmission Date: 20061013
  Serious: Yes (Hospitalization)
  Sender: FDA-Public Use
  Company Number: US-AMGEN-US175757

PATIENT
  Sex: Female
  Weight: 74.5 kg

DRUGS (11)
  1. PROCRIT [Suspect]
     Indication: RENAL FAILURE CHRONIC
     Route: 058
     Dates: start: 20060301
  2. CELLCEPT [Concomitant]
  3. PREDNISONE [Concomitant]
  4. NORVASC [Concomitant]
  5. RAPAMUNE [Concomitant]
  6. MAGNESIUM OXIDE [Concomitant]
  7. BACTRIM [Concomitant]
  8. DIFLUCAN [Concomitant]
  9. SODIUM BICARBONATE [Concomitant]
  10. PROTONIX [Concomitant]
  11. POTASSIUM CHLORIDE [Concomitant]

REACTIONS (1)
  - ANAEMIA [None]
